FAERS Safety Report 4380313-2 (Version None)
Quarter: 2004Q2

REPORT INFORMATION
  Report Type: 
  Country: None (occurrence: None)
  Receive Date: 20040616
  Receipt Date: 20040616
  Transmission Date: 20050107
  Serious: Yes (Other)
  Sender: FDA-Public Use
  Company Number: None

PATIENT
  Age: 27 Year
  Sex: Male
  Weight: 68.0396 kg

DRUGS (23)
  1. XOLAIR-NOVARTIS/GENENTECH 150 MG VIAL [Suspect]
     Indication: ASTHMA
     Dosage: 300 MG SQ/ID Q 2WKS
     Dates: start: 20040430
  2. XOLAIR-NOVARTIS/GENENTECH 150 MG VIAL [Suspect]
     Indication: HYPERSENSITIVITY
     Dosage: 300 MG SQ/ID Q 2WKS
     Dates: start: 20040430
  3. XOLAIR-NOVARTIS/GENENTECH 150 MG VIAL [Suspect]
     Indication: ASTHMA
     Dosage: 300 MG SQ/ID Q 2WKS
     Dates: start: 20040503
  4. XOLAIR-NOVARTIS/GENENTECH 150 MG VIAL [Suspect]
     Indication: HYPERSENSITIVITY
     Dosage: 300 MG SQ/ID Q 2WKS
     Dates: start: 20040503
  5. XOLAIR-NOVARTIS/GENENTECH 150 MG VIAL [Suspect]
     Indication: ASTHMA
     Dosage: 300 MG SQ/ID Q 2WKS
     Dates: start: 20040527
  6. XOLAIR-NOVARTIS/GENENTECH 150 MG VIAL [Suspect]
     Indication: HYPERSENSITIVITY
     Dosage: 300 MG SQ/ID Q 2WKS
     Dates: start: 20040527
  7. XOLAIR-NOVARTIS/GENENTECH 150 MG VIAL [Suspect]
     Indication: ASTHMA
     Dosage: 300 MG SQ/ID Q 2WKS
     Dates: start: 20040609
  8. XOLAIR-NOVARTIS/GENENTECH 150 MG VIAL [Suspect]
     Indication: HYPERSENSITIVITY
     Dosage: 300 MG SQ/ID Q 2WKS
     Dates: start: 20040609
  9. FORADIL [Concomitant]
  10. PULMICORT [Concomitant]
  11. RHINOCORT [Concomitant]
  12. SINGULAIR [Concomitant]
  13. ALBUTEROL [Concomitant]
  14. ATROVENT [Concomitant]
  15. ALOCRIL [Concomitant]
  16. AVELOX [Concomitant]
  17. KENALOG [Concomitant]
  18. PREVACID [Concomitant]
  19. MUCOFEN [Concomitant]
  20. ALLEGRA-D [Concomitant]
  21. IBUPROFEN [Concomitant]
  22. CLARITIN [Concomitant]
  23. ALLEGRA [Concomitant]

REACTIONS (3)
  - ARTHRALGIA [None]
  - INFLUENZA LIKE ILLNESS [None]
  - MYALGIA [None]
